FAERS Safety Report 6919963-5 (Version None)
Quarter: 2010Q3

REPORT INFORMATION
  Report Type: 
  Country: None (occurrence: None)
  Receive Date: 20100811
  Receipt Date: 20100712
  Transmission Date: 20110219
  Serious: Yes (Life-Threatening, Other)
  Sender: FDA-Public Use
  Company Number: FR-GENZYME-CLOF-1000938

PATIENT
  Age: 60 Year
  Sex: Male
  Weight: 95 kg

DRUGS (5)
  1. EVOLTRA [Suspect]
     Indication: ACUTE LYMPHOCYTIC LEUKAEMIA
     Dosage: 60 MG/M2, QD
     Route: 042
     Dates: start: 20100421, end: 20100423
  2. POLARAMINE [Concomitant]
     Indication: PROPHYLAXIS
     Dosage: UNK
     Dates: start: 20100421, end: 20100521
  3. ZOPHREN [Concomitant]
     Indication: PROPHYLAXIS
     Dosage: 1 OTHER, UNK
     Dates: start: 20100421, end: 20100524
  4. ZYLORIC [Concomitant]
     Indication: PROPHYLAXIS
     Dosage: 300 MG, UNK
     Dates: start: 20100422, end: 20100508
  5. NOXAFIL [Concomitant]
     Indication: ANTIFUNGAL TREATMENT
     Dosage: UNK
     Dates: start: 20100420, end: 20100521

REACTIONS (3)
  - CYTOLYTIC HEPATITIS [None]
  - HEPATITIS B CORE ANTIGEN POSITIVE [None]
  - HEPATITIS B SURFACE ANTIGEN POSITIVE [None]
